FAERS Safety Report 11874247 (Version 1)
Quarter: 2015Q4

REPORT INFORMATION
  Report Type: Spontaneous
  Country: US (occurrence: US)
  Receive Date: 20151229
  Receipt Date: 20151229
  Transmission Date: 20160305
  Serious: Yes (Hospitalization)
  Sender: FDA-Public Use
  Company Number: US-BEH-2015057168

PATIENT
  Sex: Male
  Weight: 37 kg

DRUGS (24)
  1. HIZENTRA [Suspect]
     Active Substance: HUMAN IMMUNOGLOBULIN G
     Indication: EPILEPSY
     Dosage: 4 GM 20 ML VIAL
     Route: 058
     Dates: start: 20131115
  2. L-LYSINE [Concomitant]
     Active Substance: LYSINE
  3. LIDOCAINE/PRILOCAINE [Concomitant]
  4. LMX [Concomitant]
     Active Substance: LIDOCAINE
  5. AZITHROMYCIN [Concomitant]
     Active Substance: AZITHROMYCIN ANHYDROUS
  6. FLONASE [Concomitant]
     Active Substance: FLUTICASONE PROPIONATE
  7. NEURONTIN [Concomitant]
     Active Substance: GABAPENTIN
  8. FLUVOXAMINE [Concomitant]
     Active Substance: FLUVOXAMINE
  9. ALLEGRA [Concomitant]
     Active Substance: FEXOFENADINE HYDROCHLORIDE
  10. VITAMIN D [Concomitant]
     Active Substance: CHOLECALCIFEROL
  11. ONFI [Concomitant]
     Active Substance: CLOBAZAM
  12. MELATONIN [Concomitant]
     Active Substance: MELATONIN
  13. BENTYL [Concomitant]
     Active Substance: DICYCLOMINE HYDROCHLORIDE
  14. DEPAKOTE [Concomitant]
     Active Substance: DIVALPROEX SODIUM
  15. HIZENTRA [Suspect]
     Active Substance: HUMAN IMMUNOGLOBULIN G
     Indication: HUMORAL IMMUNE DEFECT
     Dosage: 2 GM 10 ML VIAL
     Route: 058
     Dates: start: 20131115
  16. VALPROIC [Concomitant]
     Active Substance: VALPROIC ACID
  17. MAGNESIUM [Concomitant]
     Active Substance: MAGNESIUM
  18. DIPHENHYDRAMINE. [Concomitant]
     Active Substance: DIPHENHYDRAMINE
  19. PEPCID [Concomitant]
     Active Substance: FAMOTIDINE
  20. VSL [Concomitant]
  21. EPIPEN [Concomitant]
     Active Substance: EPINEPHRINE
  22. GAS- X [Concomitant]
  23. OXYGEN. [Concomitant]
     Active Substance: OXYGEN
  24. CARNITOR [Concomitant]
     Active Substance: LEVOCARNITINE

REACTIONS (1)
  - Status epilepticus [Unknown]
